FAERS Safety Report 7442011-8 (Version None)
Quarter: 2011Q2

REPORT INFORMATION
  Report Type: 
  Country: None (occurrence: None)
  Receive Date: 20110428
  Receipt Date: 20100714
  Transmission Date: 20111010
  Serious: No
  Sender: FDA-Public Use
  Company Number: US-ASTRAZENECA-2010SE32825

PATIENT
  Age: 39 Year
  Sex: Female
  Weight: 59 kg

DRUGS (6)
  1. EXCEDRIN (MIGRAINE) [Concomitant]
     Indication: MIGRAINE
  2. IMITREX [Concomitant]
  3. MAXALT [Concomitant]
  4. ZOMIG [Suspect]
     Indication: MIGRAINE
     Route: 048
  5. EMERGE [Concomitant]
  6. ZOMIG [Suspect]
     Route: 048
     Dates: start: 20070101

REACTIONS (5)
  - DIZZINESS [None]
  - DRY MOUTH [None]
  - POLLAKIURIA [None]
  - ROSACEA [None]
  - ABDOMINAL PAIN [None]
